FAERS Safety Report 6554202-9 (Version None)
Quarter: 2010Q1

REPORT INFORMATION
  Report Type: 
  Country: None (occurrence: None)
  Receive Date: 20100127
  Receipt Date: 20100114
  Transmission Date: 20100710
  Serious: Yes (Hospitalization)
  Sender: FDA-Public Use
  Company Number: US-WATSON-2010-00614

PATIENT
  Age: 36 Year
  Sex: Female

DRUGS (1)
  1. LAMOTRIGINE [Suspect]
     Indication: ANXIETY
     Dosage: UNK

REACTIONS (3)
  - MENINGITIS ASEPTIC [None]
  - RASH ERYTHEMATOUS [None]
  - RASH MACULO-PAPULAR [None]
